FAERS Safety Report 8096923-5 (Version None)
Quarter: 2012Q1

REPORT INFORMATION
  Report Type: 
  Country: None (occurrence: None)
  Receive Date: 20120129
  Receipt Date: 20111115
  Transmission Date: 20120608
  Serious: No
  Sender: FDA-Public Use
  Company Number: US-ABBOTT-11P-163-0874544-00

PATIENT
  Age: 55 Year
  Sex: Male

DRUGS (5)
  1. MONOPRIL [Concomitant]
     Indication: BLOOD PRESSURE
  2. SINGULAIR [Concomitant]
     Indication: SINUS DISORDER
  3. PROCARDIA [Concomitant]
     Indication: BLOOD PRESSURE
  4. HUMIRA [Suspect]
     Indication: PSORIASIS
     Dates: start: 20111111
  5. UNKNOWN SALVE [Concomitant]
     Indication: PRODUCT USED FOR UNKNOWN INDICATION
     Dosage: OCCASIONALLY

REACTIONS (1)
  - HEADACHE [None]
